FAERS Safety Report 6326379-1 (Version None)
Quarter: 2009Q3

REPORT INFORMATION
  Report Type: 
  Country: None (occurrence: None)
  Receive Date: 20090821
  Receipt Date: 20090807
  Transmission Date: 20100115
  Serious: Yes (Hospitalization)
  Sender: FDA-Public Use
  Company Number: 001520

PATIENT
  Sex: Male

DRUGS (7)
  1. VIMPAT [Suspect]
     Indication: EPILEPSY
     Dosage: 50 MG QD, 50 MG BID
     Dates: start: 20090630, end: 20090710
  2. VIMPAT [Suspect]
     Indication: EPILEPSY
     Dosage: 50 MG QD, 50 MG BID
     Dates: start: 20090710, end: 20090725
  3. ALEPSAL [Concomitant]
  4. LAMICTAL [Concomitant]
  5. SEGLOR [Concomitant]
  6. NICOBION [Concomitant]
  7. CLARITYNE /00917501/ [Concomitant]

REACTIONS (5)
  - CONFUSIONAL STATE [None]
  - DYSKINESIA [None]
  - EYE MOVEMENT DISORDER [None]
  - MENTAL STATUS CHANGES [None]
  - PSYCHOMOTOR RETARDATION [None]
